FAERS Safety Report 20782723 (Version 1)
Quarter: 2022Q2

REPORT INFORMATION
  Report Type: Spontaneous
  Country: FR (occurrence: FR)
  Receive Date: 20220504
  Receipt Date: 20220504
  Transmission Date: 20220720
  Serious: Yes (Other)
  Sender: FDA-Public Use
  Company Number: FR-MYLANLABS-2022M1032443

PATIENT
  Age: 40 Year
  Sex: Female

DRUGS (25)
  1. METHOTREXATE [Suspect]
     Active Substance: METHOTREXATE
     Indication: Lymphoma
     Dosage: SECOND LINE THERAPY
     Route: 037
     Dates: end: 201808
  2. PREDNISOLONE [Suspect]
     Active Substance: PREDNISOLONE
     Indication: Lymphoma
     Dosage: SECOND LINE CHEMOTHERAPY
     Route: 065
     Dates: end: 201808
  3. CARBOPLATIN [Suspect]
     Active Substance: CARBOPLATIN
     Indication: Lymphoma
     Dosage: THIRD-LINE CHEMOTHERAPY
     Route: 065
     Dates: start: 201902
  4. ETOPOSIDE [Suspect]
     Active Substance: ETOPOSIDE
     Indication: Lymphoma
     Dosage: THIRD-LINE CHEMOTHERAPY
     Route: 065
     Dates: start: 201902
  5. ETOPOSIDE [Suspect]
     Active Substance: ETOPOSIDE
     Dosage: RECEIVED AFTER AUTOLOGOUS STEM CELL TRANSPLANTATION
     Route: 065
     Dates: start: 2019
  6. RITUXIMAB [Suspect]
     Active Substance: RITUXIMAB
     Indication: Lymphoma
     Dosage: INFUSION; FIRST LINE THERAPY ; FOR 4 WEEKS
     Route: 065
     Dates: start: 201802
  7. RITUXIMAB [Suspect]
     Active Substance: RITUXIMAB
     Dosage: SECOND LINE THERAPY
     Route: 065
     Dates: end: 201808
  8. RITUXIMAB [Suspect]
     Active Substance: RITUXIMAB
     Dosage: THIRD-LINE CHEMOTHERAPY
     Route: 065
     Dates: start: 201902
  9. RITUXIMAB [Suspect]
     Active Substance: RITUXIMAB
     Dosage: BRIDGING CHEMOTHERAPY
     Route: 065
     Dates: start: 201906
  10. CYTARABINE [Suspect]
     Active Substance: CYTARABINE
     Indication: Lymphoma
     Dosage: SECOND LINE THERAPY
     Route: 065
     Dates: end: 201808
  11. CYTARABINE [Suspect]
     Active Substance: CYTARABINE
     Dosage: RECEIVED AFTER AUTOLOGOUS STEM CELL TRANSPLANTATION
     Route: 065
     Dates: start: 2019
  12. VINCRISTINE [Suspect]
     Active Substance: VINCRISTINE
     Indication: Lymphoma
     Dosage: SECOND LINE THERAPY
     Route: 065
     Dates: end: 201808
  13. DOXORUBICIN [Suspect]
     Active Substance: DOXORUBICIN
     Indication: Lymphoma
     Dosage: SECOND LINE THERAPY
     Route: 065
     Dates: end: 201808
  14. CYCLOPHOSPHAMIDE [Suspect]
     Active Substance: CYCLOPHOSPHAMIDE
     Indication: Lymphoma
     Dosage: SECOND LINE THERAPY
     Route: 065
     Dates: end: 201808
  15. CYCLOPHOSPHAMIDE [Suspect]
     Active Substance: CYCLOPHOSPHAMIDE
     Dosage: LYMPHODEPLETIVE CONDITIONING
     Route: 065
     Dates: start: 201906
  16. IFOSFAMIDE [Suspect]
     Active Substance: IFOSFAMIDE
     Indication: Lymphoma
     Dosage: THIRD-LINE CHEMOTHERAPY
     Route: 065
     Dates: start: 201902
  17. CARMUSTINE [Suspect]
     Active Substance: CARMUSTINE
     Indication: Lymphoma
     Dosage: RECEIVED AFTER AUTOLOGOUS STEM CELL TRANSPLANTATION
     Route: 065
     Dates: start: 2019
  18. MELPHALAN [Suspect]
     Active Substance: MELPHALAN
     Indication: Lymphoma
     Dosage: RECEIVED AFTER AUTOLOGOUS STEM CELL TRANSPLANTATION
     Route: 065
     Dates: start: 2019
  19. KYMRIAH [Concomitant]
     Active Substance: TISAGENLECLEUCEL
     Indication: Lymphoma
     Dosage: UNK, INFUSION
     Dates: start: 201907
  20. PREDNISONE [Concomitant]
     Active Substance: PREDNISONE
     Indication: Immunosuppressant drug therapy
     Dosage: 20 MILLIGRAM, QD
     Route: 065
  21. PREDNISONE [Concomitant]
     Active Substance: PREDNISONE
     Dosage: 20 MILLIGRAM, QD
     Route: 065
     Dates: start: 2019
  22. TACROLIMUS [Concomitant]
     Active Substance: TACROLIMUS
     Indication: Immunosuppressant drug therapy
     Dosage: 8 MILLIGRAM, BID, TROUGH LEVEL 5.4 NG/ML
     Route: 065
  23. DEXAMETHASONE [Concomitant]
     Active Substance: DEXAMETHASONE
     Indication: Immunosuppressant drug therapy
     Dosage: UNK, BRIDGING CHEMOTHERAPY
     Route: 065
     Dates: start: 201906
  24. FLUDARABINE [Concomitant]
     Active Substance: FLUDARABINE PHOSPHATE
     Indication: Product used for unknown indication
     Dosage: UNK, LYMPHODEPLETIVE CONDITIONING
     Route: 065
     Dates: start: 201906
  25. VORICONAZOLE [Suspect]
     Active Substance: VORICONAZOLE
     Indication: Aspergillus infection
     Dosage: UNK
     Route: 065

REACTIONS (1)
  - Drug ineffective [Unknown]
